FAERS Safety Report 9891653 (Version 2)
Quarter: 2014Q1

REPORT INFORMATION
  Report Type: Report from Study
  Country: CL (occurrence: CL)
  Receive Date: 20140212
  Receipt Date: 20140302
  Transmission Date: 20141002
  Serious: Yes (Other)
  Sender: FDA-Public Use
  Company Number: CL-ROCHE-1348128

PATIENT
  Sex: Female

DRUGS (1)
  1. TRASTUZUMAB EMTANSINE [Suspect]
     Indication: BREAST CANCER
     Dosage: CYCLE 1 ON 22/OCT/2013.?CYCLE 2 ON 13/NOV/2013.?CYCLE 3 ON 4/DEC/2013 (LAST DOSE).
     Route: 065
     Dates: start: 20131022, end: 20131204

REACTIONS (1)
  - Disease progression [Unknown]
